FAERS Safety Report 5204008-8 (Version None)
Quarter: 2007Q1

REPORT INFORMATION
  Report Type: 
  Country: None (occurrence: None)
  Receive Date: 20070110
  Receipt Date: 20061128
  Transmission Date: 20070707
  Serious: Yes (Hospitalization, Other)
  Sender: FDA-Public Use
  Company Number: US-PFIZER INC-2006150484

PATIENT
  Sex: Female

DRUGS (2)
  1. CELEBREX [Suspect]
     Route: 048
     Dates: start: 19990310, end: 20001227
  2. VIOXX [Suspect]
     Route: 048
     Dates: start: 20000808, end: 20000919

REACTIONS (5)
  - AMNESIA [None]
  - APHASIA [None]
  - CEREBROVASCULAR ACCIDENT [None]
  - DYSARTHRIA [None]
  - GAIT DISTURBANCE [None]
